FAERS Safety Report 23603561 (Version 1)
Quarter: 2024Q1

REPORT INFORMATION
  Report Type: Spontaneous
  Country: ES (occurrence: ES)
  Receive Date: 20240307
  Receipt Date: 20240307
  Transmission Date: 20240410
  Serious: Yes (Hospitalization)
  Sender: FDA-Public Use
  Company Number: None

PATIENT
  Age: 87 Year
  Sex: Male

DRUGS (3)
  1. CLOPIDOGREL [Interacting]
     Active Substance: CLOPIDOGREL BISULFATE
     Indication: Prosthesis implantation
     Dosage: CLOPIDOGREL (7300A)
     Route: 048
     Dates: start: 20191211, end: 20231117
  2. ASPIRIN [Interacting]
     Active Substance: ASPIRIN
     Indication: Prosthesis implantation
     Dosage: 1-0-0
     Route: 048
     Dates: start: 20190812
  3. CIPROFLOXACIN [Concomitant]
     Active Substance: CIPROFLOXACIN
     Indication: Vascular device infection
     Dosage: CIPROFLOXACINO 1-0-1
     Route: 048
     Dates: start: 20200612

REACTIONS (1)
  - Spontaneous haematoma [Recovering/Resolving]

NARRATIVE: CASE EVENT DATE: 20231101
